FAERS Safety Report 11739636 (Version 3)
Quarter: 2016Q1

REPORT INFORMATION
  Report Type: Spontaneous
  Country: DE (occurrence: DE)
  Receive Date: 20151113
  Receipt Date: 20160210
  Transmission Date: 20160525
  Serious: Yes (Hospitalization, Other)
  Sender: FDA-Public Use
  Company Number: PHHY2015DE146822

PATIENT
  Age: 54 Year
  Sex: Female
  Weight: 73 kg

DRUGS (7)
  1. XELODA [Concomitant]
     Active Substance: CAPECITABINE
     Indication: PRODUCT USED FOR UNKNOWN INDICATION
     Dosage: EVERY 3 WEEKS
     Route: 065
     Dates: start: 20140110, end: 20140909
  2. LETROZOLE. [Suspect]
     Active Substance: LETROZOLE
     Dosage: 2.5 MG, QD
     Route: 048
     Dates: start: 20140919, end: 20150217
  3. LETROZOLE ACCORD [Suspect]
     Active Substance: LETROZOLE
     Indication: BREAST CANCER METASTATIC
     Dosage: 2.5 MG, QD
     Route: 048
     Dates: start: 20150116
  4. AFINITOR [Suspect]
     Active Substance: EVEROLIMUS
     Indication: BREAST CANCER METASTATIC
     Dosage: 10 MG, QD
     Route: 048
     Dates: start: 20150218, end: 20150415
  5. ZOLEDRONATE [Suspect]
     Active Substance: ZOLEDRONIC ACID
     Indication: BREAST CANCER METASTATIC
     Dosage: 4 MG, (EVERY 4 WEEKS)
     Route: 042
     Dates: start: 20131209, end: 20151119
  6. LETROZOLE. [Suspect]
     Active Substance: LETROZOLE
     Indication: BREAST CANCER METASTATIC
     Dosage: 2.5 MG, QD
     Route: 048
     Dates: start: 201311, end: 20140108
  7. AVASTIN [Concomitant]
     Active Substance: BEVACIZUMAB
     Indication: PRODUCT USED FOR UNKNOWN INDICATION
     Dosage: 15 MG/KG, EVERY 3 WEEKS
     Route: 065
     Dates: start: 20140109, end: 20140728

REACTIONS (6)
  - Metastases to bone [Not Recovered/Not Resolved]
  - Breast cancer metastatic [Not Recovered/Not Resolved]
  - Hypophosphataemia [Recovered/Resolved]
  - Fatigue [Recovered/Resolved]
  - Malignant neoplasm progression [Not Recovered/Not Resolved]
  - Pneumonitis [Unknown]

NARRATIVE: CASE EVENT DATE: 20140813
